FAERS Safety Report 11191500 (Version 3)
Quarter: 2015Q3

REPORT INFORMATION
  Report Type: Spontaneous
  Country: KR (occurrence: KR)
  Receive Date: 20150616
  Receipt Date: 20150907
  Transmission Date: 20151125
  Serious: Yes (Other)
  Sender: FDA-Public Use
  Company Number: KR-009507513-1506KOR002988

PATIENT
  Age: 62 Year
  Sex: Male
  Weight: 73 kg

DRUGS (24)
  1. ROCURONIUM BROMIDE. [Suspect]
     Active Substance: ROCURONIUM BROMIDE
     Indication: HYPOTONIA
     Dosage: 50 MG, ONCE
     Route: 042
     Dates: start: 20150506, end: 20150506
  2. FENTANYL CITRATE. [Concomitant]
     Active Substance: FENTANYL CITRATE
     Dosage: 1000 MG, ONCE(INFUSION)
     Dates: start: 20150506, end: 20150507
  3. MOTILIUM M [Concomitant]
     Indication: PROPHYLAXIS OF NAUSEA AND VOMITING
     Dosage: 10 MG, TID
     Route: 048
     Dates: start: 20150507, end: 20150509
  4. VESICARE [Concomitant]
     Active Substance: SOLIFENACIN SUCCINATE
     Indication: PROPHYLAXIS
     Dosage: 5 MG, QD
     Route: 048
     Dates: start: 20150507, end: 20150512
  5. DENOGAN [Concomitant]
     Indication: PAIN PROPHYLAXIS
     Dosage: 2 G, ONCE
     Route: 008
     Dates: start: 20150506, end: 20150506
  6. ACUPAN [Concomitant]
     Active Substance: NEFOPAM HYDROCHLORIDE
     Indication: PAIN PROPHYLAXIS
     Dosage: 120 MG, ONCE(INFUSION)
     Dates: start: 20150506, end: 20150507
  7. HALCION [Concomitant]
     Active Substance: TRIAZOLAM
     Indication: PROPHYLAXIS
     Dosage: 0.25 MG, ONCE
     Route: 048
     Dates: start: 20150506, end: 20150506
  8. ULTRACET [Concomitant]
     Active Substance: ACETAMINOPHEN\TRAMADOL HYDROCHLORIDE
     Indication: PAIN PROPHYLAXIS
     Dosage: 1 DF, BID
     Route: 048
     Dates: start: 20150507
  9. BRIDION [Suspect]
     Active Substance: SUGAMMADEX
     Indication: NEUROMUSCULAR BLOCKADE REVERSAL
     Dosage: 146 MG (2MG/KG), ONCE
     Route: 042
     Dates: start: 20150506, end: 20150506
  10. ROCURONIUM BROMIDE. [Suspect]
     Active Substance: ROCURONIUM BROMIDE
     Dosage: 65 MG, ONCE
     Route: 042
     Dates: start: 20150506, end: 20150506
  11. FENTANYL CITRATE. [Concomitant]
     Active Substance: FENTANYL CITRATE
     Indication: PAIN PROPHYLAXIS
     Dosage: 100 MICROGRAM, ONCE
     Route: 008
     Dates: start: 20150506, end: 20150506
  12. CEFUROXIME. [Concomitant]
     Active Substance: CEFUROXIME
     Indication: INFECTION PROPHYLAXIS
     Dosage: 750 MG, TID
     Route: 042
     Dates: start: 20150506, end: 20150507
  13. NASEA [Concomitant]
     Active Substance: RAMOSETRON HYDROCHLORIDE
     Indication: PROPHYLAXIS OF NAUSEA AND VOMITING
     Dosage: 0.3 MG, QD
     Route: 042
     Dates: start: 20150506, end: 20150508
  14. MULTIBLUE5 [Concomitant]
     Indication: PROPHYLAXIS
     Dosage: 10 ML, QD
     Route: 042
     Dates: start: 20150506, end: 20150509
  15. STOGAR [Concomitant]
     Indication: ANTACID THERAPY
     Dosage: 1 DF, BID
     Dates: start: 20150507
  16. TRANSAMIN [Concomitant]
     Active Substance: TRANEXAMIC ACID
     Indication: HAEMORRHAGE PROPHYLAXIS
     Dosage: 1 DF, TID
     Dates: start: 20150507
  17. DULCOLAX [Concomitant]
     Active Substance: BISACODYL OR DOCUSATE SODIUM
     Indication: ENEMA ADMINISTRATION
     Dosage: 20 MG, ONCE
     Route: 054
     Dates: start: 20150506, end: 20150506
  18. AMBROXOL HYDROCHLORIDE [Concomitant]
     Active Substance: AMBROXOL HYDROCHLORIDE
     Indication: PROPHYLAXIS
     Dosage: 15 MG, BID
     Route: 042
     Dates: start: 20150506, end: 20150509
  19. URANTAC [Concomitant]
     Indication: HAEMORRHAGE PROPHYLAXIS
     Dosage: 70 MG, BID
     Route: 042
     Dates: start: 20150506, end: 20150509
  20. DUPHALAC [Concomitant]
     Active Substance: LACTULOSE
     Indication: CONSTIPATION PROPHYLAXIS
     Dosage: 15 ML, TID
     Route: 048
     Dates: start: 20150507, end: 20150512
  21. ZIPAN (TRAMADOL HYDROCHLORIDE) [Concomitant]
     Indication: PAIN PROPHYLAXIS
     Dosage: 50 MG, QD
     Dates: start: 20150511, end: 20150511
  22. ALOXI [Concomitant]
     Active Substance: PALONOSETRON HYDROCHLORIDE
     Indication: PROPHYLAXIS OF NAUSEA AND VOMITING
     Dosage: 75 MICROGRAM, QD
     Route: 041
     Dates: start: 20150506, end: 20150507
  23. CEFUROXIME. [Concomitant]
     Active Substance: CEFUROXIME
     Dosage: UNK
     Dates: start: 20150512
  24. BOTROPASE [Concomitant]
     Indication: HAEMORRHAGE PROPHYLAXIS
     Dosage: 2 ML, BID
     Route: 042
     Dates: start: 20150506, end: 20150509

REACTIONS (9)
  - Hypertensive crisis [Recovered/Resolved]
  - Hypertensive crisis [Recovered/Resolved]
  - Pyrexia [Recovered/Resolved]
  - Dizziness [Recovered/Resolved]
  - Nausea [Recovered/Resolved]
  - Chills [Recovered/Resolved]
  - Musculoskeletal stiffness [Recovered/Resolved]
  - Blood pressure decreased [Recovered/Resolved]
  - Dysuria [Recovered/Resolved]

NARRATIVE: CASE EVENT DATE: 20150506
